FAERS Safety Report 5241670-8 (Version None)
Quarter: 2007Q1

REPORT INFORMATION
  Report Type: 
  Country: None (occurrence: None)
  Receive Date: 20070220
  Receipt Date: 20070208
  Transmission Date: 20070707
  Serious: Yes (Hospitalization, Other)
  Sender: FDA-Public Use
  Company Number: US-ELI_LILLY_AND_COMPANY-US200610005372

PATIENT
  Age: 83 Year
  Sex: Female

DRUGS (9)
  1. FORTEO [Suspect]
     Indication: OSTEOPOROSIS
     Dosage: 20 UG, DAILY (1/D)
     Dates: start: 20060124, end: 20061107
  2. SYNTHROID [Concomitant]
     Indication: THYROID DISORDER
     Dosage: 0.125 UG, DAILY (1/D)
  3. DYAZIDE [Concomitant]
     Indication: BLOOD PRESSURE
  4. CARDIZEM [Concomitant]
     Indication: CARDIAC FAILURE CONGESTIVE
     Dosage: 180 MG, DAILY (1/D)
  5. DIOVAN [Concomitant]
     Indication: BLOOD PRESSURE
     Dosage: 320 MG, DAILY (1/D)
  6. COREG [Concomitant]
     Indication: CARDIAC DISORDER
     Dosage: 25 MG, DAILY (1/D)
  7. FOSAMAX                                 /ITA/ [Concomitant]
     Indication: OSTEOPOROSIS
     Dosage: 70 MG, WEEKLY (1/W)
  8. ALPRAZOLAM [Concomitant]
     Dosage: 0.5 MG, EACH EVENING
  9. ARICEPT                                 /JPN/ [Concomitant]
     Indication: MEMORY IMPAIRMENT
     Dosage: 5 MG, EACH EVENING

REACTIONS (2)
  - BREAST CANCER [None]
  - PHARMACEUTICAL PRODUCT COMPLAINT [None]
